FAERS Safety Report 10144992 (Version 3)
Quarter: 2014Q2

REPORT INFORMATION
  Report Type: Report from Study
  Country: CA (occurrence: CA)
  Receive Date: 20140501
  Receipt Date: 20140514
  Transmission Date: 20141212
  Serious: Yes (Other)
  Sender: FDA-Public Use
  Company Number: CA-ROCHE-1387666

PATIENT
  Sex: Male

DRUGS (3)
  1. PEGASYS [Suspect]
     Indication: CHRONIC HEPATITIS C
     Dosage: 0.5 ML PRE-FILLED SYRINGE
     Route: 058
     Dates: start: 20140207, end: 2014
  2. COPEGUS [Suspect]
     Indication: CHRONIC HEPATITIS C
     Dosage: 35 TABLET/WEEK
     Route: 048
     Dates: start: 20140207, end: 2014
  3. VICTRELIS [Suspect]
     Indication: CHRONIC HEPATITIS C
     Route: 048

REACTIONS (9)
  - Memory impairment [Unknown]
  - Decreased appetite [Unknown]
  - Mental impairment [Unknown]
  - Apathy [Unknown]
  - Irritability [Unknown]
  - Dysgeusia [Unknown]
  - Headache [Unknown]
  - Nausea [Unknown]
  - Vomiting [Unknown]
